FAERS Safety Report 9279343 (Version 1)
Quarter: 2013Q2

REPORT INFORMATION
  Report Type: Spontaneous
  Country: US (occurrence: US)
  Receive Date: 20130508
  Receipt Date: 20130508
  Transmission Date: 20140414
  Serious: Yes (Other)
  Sender: FDA-Public Use
  Company Number: US-ELI_LILLY_AND_COMPANY-US201305000288

PATIENT
  Age: 74 Year
  Sex: Male

DRUGS (15)
  1. HUMULIN NPH [Suspect]
     Indication: BLOOD GLUCOSE INCREASED
     Dosage: 45 U, BID
     Dates: start: 1993
  2. HUMULIN REGULAR [Suspect]
     Dosage: 27 U, QD
     Dates: start: 2003
  3. DILTIAZEM [Concomitant]
     Indication: BLOOD PRESSURE ABNORMAL
     Dosage: 120 MG, QD
  4. TEKTURNA [Concomitant]
     Dosage: 300 MG, QD
  5. TAMSULOSIN [Concomitant]
     Dosage: 0.4 MG, QD
  6. METOPROLOL TARTRATE [Concomitant]
     Indication: BLOOD PRESSURE ABNORMAL
     Dosage: 100 MG, BID
  7. MYCOPHENOLATE MOFETIL [Concomitant]
     Indication: IMMUNE SYSTEM DISORDER
     Dosage: 250 MG, TID
  8. PROGRAF [Concomitant]
     Indication: IMMUNOSUPPRESSION
     Dosage: 1 MG, BID
  9. SIMVASTATIN [Concomitant]
     Indication: BLOOD CHOLESTEROL ABNORMAL
     Dosage: 10 MG, QD
  10. LASIX                                   /USA/ [Concomitant]
     Indication: FLUID RETENTION
     Dosage: 40 MG, UNK
  11. TRICOR [Concomitant]
     Indication: BLOOD CHOLESTEROL ABNORMAL
     Dosage: 48 MG, QD
  12. ASPIRIN [Concomitant]
     Dosage: 81 MG, QD
  13. PREDNISOLONE [Concomitant]
     Dosage: 1 DF, EACH EVENING
     Route: 047
  14. TRAVATAN [Concomitant]
     Indication: GLAUCOMA
     Dosage: 1 DF, EACH EVENING
  15. ALPHAGAN [Concomitant]
     Indication: GLAUCOMA
     Dosage: 1 DF, UNK

REACTIONS (5)
  - Prostate cancer [Unknown]
  - Squamous cell carcinoma of skin [Unknown]
  - Visual impairment [Unknown]
  - Blood glucose increased [Unknown]
  - Blood glucose decreased [Unknown]
